FAERS Safety Report 13304747 (Version 1)
Quarter: 2017Q1

REPORT INFORMATION
  Report Type: Spontaneous
  Country: US (occurrence: US)
  Receive Date: 20170307
  Receipt Date: 20170307
  Transmission Date: 20170428
  Serious: Yes (Other)
  Sender: FDA-Public Use
  Company Number: None

PATIENT
  Age: 73 Year
  Sex: Female
  Weight: 51.75 kg

DRUGS (7)
  1. CITELAPRAM [Concomitant]
  2. ASPIRIN. [Concomitant]
     Active Substance: ASPIRIN
  3. ATOVISTATIN [Concomitant]
  4. FOLEY CATHETER [Concomitant]
  5. CALCIUM+D [Concomitant]
     Active Substance: CALCIUM\VITAMIN D
  6. TOVIAZ [Suspect]
     Active Substance: FESOTERODINE FUMARATE
     Indication: MICTURITION URGENCY
     Dosage: ?          QUANTITY:1 TABLET(S);?
     Route: 048
     Dates: start: 20170213, end: 20170213
  7. FISH OIL [Concomitant]
     Active Substance: FISH OIL

REACTIONS (1)
  - Urinary retention [None]

NARRATIVE: CASE EVENT DATE: 20170213
